FAERS Safety Report 11686512 (Version 1)
Quarter: 2015Q4

REPORT INFORMATION
  Report Type: Spontaneous
  Country: US (occurrence: US)
  Receive Date: 20151030
  Receipt Date: 20151030
  Transmission Date: 20160304
  Serious: Yes (Other)
  Sender: FDA-Public Use
  Company Number: US-JUBILANT CADISTA PHARMACEUTICALS-2015JUB00339

PATIENT
  Age: 62 Year
  Sex: Female
  Weight: 67.57 kg

DRUGS (5)
  1. LAMOTRIGINE TABLETS 25MG [Suspect]
     Active Substance: LAMOTRIGINE
     Indication: SEIZURE
     Dosage: UNK UNK, 2X/DAY
     Route: 048
     Dates: start: 201412, end: 201502
  2. LAMOTRIGINE TABLETS 25MG [Suspect]
     Active Substance: LAMOTRIGINE
     Dosage: 50 MG, 2X/DAY
     Route: 048
     Dates: start: 2015
  3. PHENYTOIN. [Concomitant]
     Active Substance: PHENYTOIN
     Indication: SEIZURE
     Dosage: UNK UNK, 1X/DAY
     Route: 048
     Dates: start: 201412, end: 201502
  4. LEXAPRO [Concomitant]
     Active Substance: ESCITALOPRAM OXALATE
     Dosage: 5 MG, 1X/DAY
  5. PHENYTOIN. [Concomitant]
     Active Substance: PHENYTOIN
     Dosage: 300 MG, 1X/DAY
     Dates: start: 201502, end: 20150315

REACTIONS (9)
  - Drug ineffective [Recovered/Resolved]
  - Dyspnoea [Recovered/Resolved]
  - Memory impairment [Not Recovered/Not Resolved]
  - Somnolence [Recovered/Resolved]
  - Alcohol poisoning [Recovered/Resolved]
  - Seizure [Recovered/Resolved]
  - Anxiety [Recovered/Resolved]
  - Incoherent [Recovered/Resolved]
  - Alcohol interaction [Recovered/Resolved]

NARRATIVE: CASE EVENT DATE: 20150315
